FAERS Safety Report 8912720 (Version 1)
Quarter: 2012Q4

REPORT INFORMATION
  Report Type: 
  Country: US (occurrence: US)
  Receive Date: 20121116
  Receipt Date: 20121116
  Transmission Date: 20130627
  Serious: Yes (Hospitalization)
  Sender: FDA-Public Use
  Company Number: US-ALLERGAN-1215648US

PATIENT
  Age: 5 Year
  Sex: Male

DRUGS (1)
  1. BOTOX� [Suspect]
     Indication: CEREBRAL PALSY
     Dosage: 200 UNITS, single
     Route: 030
     Dates: start: 20120524, end: 20120524

REACTIONS (2)
  - Face oedema [Recovered/Resolved]
  - Vomiting [Recovered/Resolved]
